FAERS Safety Report 24806689 (Version 5)
Quarter: 2025Q4

REPORT INFORMATION
  Report Type: Spontaneous
  Country: CA (occurrence: CA)
  Receive Date: 20250104
  Receipt Date: 20251020
  Transmission Date: 20260117
  Serious: Yes (Hospitalization, Other)
  Sender: CELLTRION
  Company Number: CA-PFIZER INC-PV202400050731

PATIENT

DRUGS (97)
  1. INFLIXIMAB [Suspect]
     Active Substance: INFLIXIMAB
     Indication: Colitis ulcerative
     Dosage: 400 MILLIGRAM
     Route: 042
  2. INFLIXIMAB [Suspect]
     Active Substance: INFLIXIMAB
     Dosage: 400 MILLIGRAM
     Route: 042
  3. INFLIXIMAB [Suspect]
     Active Substance: INFLIXIMAB
     Dosage: 200 MILLIGRAM
     Route: 042
  4. INFLIXIMAB [Suspect]
     Active Substance: INFLIXIMAB
     Dosage: 400 MILLIGRAM
     Route: 042
  5. INFLIXIMAB [Suspect]
     Active Substance: INFLIXIMAB
     Dosage: 400 MILLIGRAM
     Route: 042
  6. INFLIXIMAB [Suspect]
     Active Substance: INFLIXIMAB
     Dosage: 200 MILLIGRAM
     Route: 042
  7. INFLIXIMAB [Suspect]
     Active Substance: INFLIXIMAB
     Dosage: 400 MILLIGRAM
     Route: 042
  8. INFLECTRA [Suspect]
     Active Substance: INFLIXIMAB-DYYB
     Indication: Colitis ulcerative
     Dosage: 400 MG, 0, 2, 6 AND THEN 200 MG EVERY 8 WEEKS (WEEK 0)
     Route: 042
     Dates: start: 20240408
  9. INFLECTRA [Suspect]
     Active Substance: INFLIXIMAB-DYYB
     Dosage: 400 MG (WEEK 2)
     Route: 042
     Dates: start: 20240419
  10. INFLECTRA [Suspect]
     Active Substance: INFLIXIMAB-DYYB
     Dosage: 400 MG (WEEK 6)
     Route: 042
     Dates: start: 20240516
  11. INFLECTRA [Suspect]
     Active Substance: INFLIXIMAB-DYYB
     Dosage: 200 MG, EVERY 8 WEEKS
     Route: 042
     Dates: start: 20240711
  12. INFLECTRA [Suspect]
     Active Substance: INFLIXIMAB-DYYB
     Dosage: 200 MG, EVERY 8 WEEKS
     Route: 042
     Dates: start: 20241031
  13. INFLECTRA [Suspect]
     Active Substance: INFLIXIMAB-DYYB
     Dosage: 400 MG, EVERY 8 WEEKS
     Route: 042
     Dates: start: 20241227
  14. INFLECTRA [Suspect]
     Active Substance: INFLIXIMAB-DYYB
     Dosage: 400 MG, EVERY 8 WEEKS
     Route: 042
     Dates: start: 20250417
  15. INFLECTRA [Suspect]
     Active Substance: INFLIXIMAB-DYYB
     Dosage: 400 MG EVERY 8 WEEKS
     Route: 042
     Dates: start: 20250612, end: 20250612
  16. ACETAMINOPHEN [Concomitant]
     Active Substance: ACETAMINOPHEN
     Indication: Pain
     Dosage: 500 MG, 2X/DAY (ES ORAL TABLET AS NEEDED FOR PAIN OR FEVER TWICE DAILY (MAX. 4GM ACET/24HR))
     Route: 048
  17. ACETAMINOPHEN [Concomitant]
     Active Substance: ACETAMINOPHEN
     Indication: Pyrexia
     Dosage: 1000 MG, 3X/DAY ((ACETAMINOPHEN) GIVE 2 TABLET (2 TABLETS = 1000MG DOSE))
     Route: 048
     Dates: start: 20240703
  18. ACETAMINOPHEN [Concomitant]
     Active Substance: ACETAMINOPHEN
     Indication: Discomfort
     Dosage: 500 MG, AS NEEDED
     Route: 048
     Dates: start: 20240627
  19. ACETAMINOPHEN [Concomitant]
     Active Substance: ACETAMINOPHEN
     Indication: Pain
     Dosage: 500 MILLIGRAM, 2 EVERY 1 DAYS
     Route: 048
  20. ACETAMINOPHEN [Concomitant]
     Active Substance: ACETAMINOPHEN
     Indication: Pyrexia
  21. ACETAMINOPHEN [Concomitant]
     Active Substance: ACETAMINOPHEN
     Indication: Discomfort
  22. ASPIRIN [Concomitant]
     Active Substance: ASPIRIN
     Dosage: 81 MG, DAILY/ 1 EVERY 1 DAY
  23. ASPIRIN [Concomitant]
     Active Substance: ASPIRIN
     Dosage: 81 MG, 1X/DAY
     Route: 048
     Dates: start: 20240628
  24. ASACOL [Concomitant]
     Active Substance: MESALAMINE
     Dosage: 1.2 G, 2X/DAY
     Route: 048
  25. ASACOL [Concomitant]
     Active Substance: MESALAMINE
     Dosage: 1600 MG, 2X/DAY
     Route: 048
  26. ASACOL [Concomitant]
     Active Substance: MESALAMINE
     Dosage: 1.2 GRAM, 2 EVERY 1 DAYS
     Route: 048
  27. ASCORBIC ACID [Concomitant]
     Active Substance: ASCORBIC ACID
     Dosage: 500 MG, (1 TABLET BY MOUTH DAILY EVERY MON,WED,FRI,SAT)
     Route: 048
  28. ASCORBIC ACID [Concomitant]
     Active Substance: ASCORBIC ACID
     Dosage: 5000MG, (1 TABLET BY MOUTH DAILY EVERY MON,WED,FRI,SAT) ALONG WITH IRON AT 13:00
     Route: 048
     Dates: start: 20240802
  29. BREZTRI [Concomitant]
     Active Substance: BUDESONIDE\FORMOTEROL\GLYCOPYRROLATE
     Indication: Chronic obstructive pulmonary disease
     Dosage: 2 DF, 2X/DAY (INHALATION AEROSOL, 2 INHALATION INHALE ORALLY TWO TIMES PER DAY, RINSE MOUTH AFTER)
     Route: 048
     Dates: start: 20241002
  30. BREZTRI [Concomitant]
     Active Substance: BUDESONIDE\FORMOTEROL\GLYCOPYRROLATE
     Dosage: UNK UNK, BID
     Route: 048
     Dates: start: 20241002
  31. BREZTRI [Concomitant]
     Active Substance: BUDESONIDE\FORMOTEROL\GLYCOPYRROLATE
     Dosage: 2 DOSAGE FORM, 2 EVERY 1 DAYS
     Route: 048
     Dates: start: 20241002
  32. CALCIUM [Concomitant]
     Active Substance: CALCIUM
     Dosage: 500 MG, 1X/DAY
     Route: 048
     Dates: start: 20240628
  33. CALCIUM [Concomitant]
     Active Substance: CALCIUM
     Dosage: UNTIL 8/14/2025 23:59 THEN DISCONTINUE
     Route: 048
     Dates: start: 20250807
  34. CALCIUM [Concomitant]
     Active Substance: CALCIUM
     Dosage: 600 MG, (2 CAPS=600 MG DOSE)
     Route: 048
  35. CALCIUM [Concomitant]
     Active Substance: CALCIUM
     Dosage: 500 MILLIGRAM, 1 EVERY 1 DAYS
     Route: 048
  36. CITALOPRAM HYDROBROMIDE [Concomitant]
     Active Substance: CITALOPRAM HYDROBROMIDE
     Dosage: 10 MG, 1X/DAY (GIVE 0.5 TAB ORALLY DAILY =10 MG)
     Route: 048
     Dates: start: 20240713
  37. CYANOCOBALAMIN [Concomitant]
     Active Substance: CYANOCOBALAMIN
     Dosage: 1000 UG, 1X/DAY (1 TAB ORAL DAILY)
     Route: 048
     Dates: start: 20240628
  38. CYANOCOBALAMIN [Concomitant]
     Active Substance: CYANOCOBALAMIN
     Dosage: 1000 MICROGRAM, 1 EVERY 1 DAYS
     Route: 048
  39. DENOSUMAB [Concomitant]
     Active Substance: DENOSUMAB
     Dosage: 60 MG, DAILY EVERY 6 MONTHS/ 1 EVERY 1 DAY
     Route: 058
     Dates: start: 20240712
  40. DENOSUMAB [Concomitant]
     Active Substance: DENOSUMAB
     Dosage: 60 MG, DAILY EVERY 6 MONTHS/ 1 EVERY 1 DAY
     Route: 058
     Dates: start: 20250112
  41. ENOXAPARIN [Concomitant]
     Active Substance: ENOXAPARIN
     Dosage: UNK
  42. FELODIPINE [Concomitant]
     Active Substance: FELODIPINE
     Dosage: 2.5 MG, 1X/DAY (24 HR 2.5 MG - 1 TAB BY MOUTH DAILY)
     Route: 048
     Dates: start: 20240628
  43. FERROUS FUMARATE [Concomitant]
     Active Substance: FERROUS FUMARATE
     Dosage: 600 MG, (DAILY MON,WED,FRI,SAT ALONG WITH VITAMIN C AT 13:00 HRS) TO SEPARATE FROM CALCIUM
     Route: 048
     Dates: start: 20240802
  44. FERROUS FUMARATE [Concomitant]
     Active Substance: FERROUS FUMARATE
     Dosage: 600 MILLIGRAM
     Route: 048
  45. GABAPENTIN [Concomitant]
     Active Substance: GABAPENTIN
     Indication: Back pain
     Dosage: 300 MG, 3X/DAY
     Route: 048
     Dates: start: 20240710
  46. GABAPENTIN [Concomitant]
     Active Substance: GABAPENTIN
     Indication: Back pain
     Dosage: 300 MILLIGRAM, 3 EVERY 1 DAYS
     Route: 048
  47. GLYCERIN ADULT [Concomitant]
     Active Substance: GLYCERIN
     Indication: Constipation
     Dosage: 1 DF, AS NEEDED (RECTAL SUPPOSITORY (LAXATIVE) INSERT 1 RECTALLY AS NEEDED IF NO BM FOR 2-3 DAYS)
     Route: 054
  48. HYDROMORPHONE HCL [Concomitant]
     Active Substance: HYDROMORPHONE HYDROCHLORIDE
     Indication: Pain
     Dosage: OK TO CONTINUE DESPITE LISTED ALLERGIES
     Route: 048
     Dates: start: 20241004
  49. HYDROMORPHONE HCL [Concomitant]
     Active Substance: HYDROMORPHONE HYDROCHLORIDE
     Dosage: 0.25-0.5MG TID WHEN NEEDED FOR PAIN(OK TO GIVE DESPITE ALLERGY LISTED)
     Route: 048
     Dates: start: 20250527
  50. HYDROMORPHONE [Concomitant]
     Active Substance: HYDROMORPHONE
     Dosage: UNK, AS NEEDED
  51. HYPROMELLOSES [Concomitant]
     Active Substance: HYPROMELLOSES
     Dosage: 1 DROP IN EACH EYE AS NEEDED, 3X/DAY
     Dates: start: 20241122
  52. HYPROMELLOSES [Concomitant]
     Active Substance: HYPROMELLOSES
     Dosage: 1 GTT, 3 EVERY 1 DAYS
  53. IPRATROPIUM [Concomitant]
     Active Substance: IPRATROPIUM
     Dosage: UNK, AS NEEDED
  54. IPRATROPIUM BROMIDE [Concomitant]
     Active Substance: IPRATROPIUM BROMIDE
     Indication: Dyspnoea
     Dosage: 2 DOSAGE FORM
  55. IPRATROPIUM BROMIDE [Concomitant]
     Active Substance: IPRATROPIUM BROMIDE
     Dosage: 1 DOSAGE FORM
  56. IRON [Concomitant]
     Active Substance: IRON
     Dosage: UNK, (EVERY MON,WED,FRI,SAT)
     Route: 048
  57. LACTULOSE [Concomitant]
     Active Substance: LACTULOSE
     Indication: Constipation
     Dosage: 10 GM/15ML,GIVE 30 ML AS NEEDED 3X DAILY IF NO BMS FOR 2-3 DAY
     Route: 048
     Dates: start: 20240627
  58. LACTULOSE [Concomitant]
     Active Substance: LACTULOSE
     Dosage: 30 ML, 3 EVERY 1 DAYS/ LIQUID ORAL
     Route: 048
     Dates: start: 20240627
  59. LANSOPRAZOLE [Concomitant]
     Active Substance: LANSOPRAZOLE
     Dosage: 30 MG, 2X/DAY
     Route: 048
     Dates: start: 20240627
  60. MAGNESIUM HYDROXIDE [Concomitant]
     Active Substance: MAGNESIUM HYDROXIDE
     Indication: Constipation
     Dosage: 3X DAILY IF NO BM FOR 2-3 DAYS
     Route: 048
  61. MELATONIN [Concomitant]
     Active Substance: MELATONIN
     Dosage: 5 MG, 1X/DAY (1 TAB ORAL AT BEDTIME)
     Route: 048
     Dates: start: 20240702
  62. MELATONIN [Concomitant]
     Active Substance: MELATONIN
     Dosage: 5 MILLIGRAM, 1 EVERY 1 DAYS
     Route: 048
  63. MEROPENEM [Concomitant]
     Active Substance: MEROPENEM
     Dosage: 1 G, 3X/DAY
  64. MEROPENEM [Concomitant]
     Active Substance: MEROPENEM
     Dosage: 1 GRAM, 3 EVERY 1 DAYS
  65. MESALAMINE [Concomitant]
     Active Substance: MESALAMINE
     Indication: Colitis ulcerative
     Dosage: AT BEDTIME FOR 3 MONTHS
     Dates: start: 20250402, end: 20250701
  66. MESALAMINE [Concomitant]
     Active Substance: MESALAMINE
     Indication: Colitis ulcerative
     Dosage: 1 DOSAGE FORM, EVERY 1 DAYS
  67. PANTOPRAZOLE [Concomitant]
     Active Substance: PANTOPRAZOLE
     Dosage: 40 MG, 2X/DAY
  68. PANTOPRAZOLE [Concomitant]
     Active Substance: PANTOPRAZOLE
     Dosage: 40 MILLIGRAM, 2 EVERY 1 DAYS
  69. PROBIOTIC 10 [BIFIDOBACTERIUM BIFIDUM;BIFIDOBACTERIUM LACTIS;LACTIPLAN [Concomitant]
     Dosage: 1 DF, 1X/DAY (1 CAPS ORAL ONE PER DAY)
     Route: 048
  70. PROBIOTIC 10 [BIFIDOBACTERIUM BIFIDUM;BIFIDOBACTERIUM LACTIS;LACTIPLAN [Concomitant]
     Dosage: 10 BILLION BY MOUTH ONE TIME A DAY
     Route: 048
     Dates: start: 20241001
  71. PSYLLIUM MUCILAGO [Concomitant]
     Indication: Diarrhoea
     Dosage: 3.4 G, DAILY, AS NEEDED
     Route: 048
     Dates: start: 20240318
  72. PSYLLIUM MUCILAGO [Concomitant]
     Dosage: 3.4 G, DAILY, AS NEEDED
     Dates: start: 20250318
  73. RISPERIDONE [Concomitant]
     Active Substance: RISPERIDONE
     Dosage: 0.125 ML, AS NEEDED
     Route: 048
  74. RISPERIDONE [Concomitant]
     Active Substance: RISPERIDONE
     Indication: Agitation
     Dosage: 0.5 MG, 2X/DAY (AT 13:00 HRS AND BEDTIME)
     Route: 048
  75. RISPERIDONE [Concomitant]
     Active Substance: RISPERIDONE
     Dosage: 0.25 MG, 4X/DAY, AS NEEDED
     Route: 048
     Dates: start: 20241127
  76. RISPERIDONE [Concomitant]
     Active Substance: RISPERIDONE
     Dosage: 0.25 MG, AT BED TIME
     Route: 048
     Dates: start: 20241127
  77. RISPERIDONE [Concomitant]
     Active Substance: RISPERIDONE
     Indication: Agitation
     Dosage: 0.125 MILLILITER, AS REQUIRED
     Route: 048
  78. ALBUTEROL [Concomitant]
     Active Substance: ALBUTEROL
     Indication: Dyspnoea
     Dosage: 1 DF, AS NEEDED
     Dates: start: 20240627
  79. ALBUTEROL [Concomitant]
     Active Substance: ALBUTEROL
     Dosage: 2 DF, EVERY2 HOURS AS NEEDED
     Route: 048
     Dates: start: 20240627
  80. ALBUTEROL [Concomitant]
     Active Substance: ALBUTEROL
     Dosage: 100MCG/ACT 1 PUFF INHALE/ INHALE 1 TO 2 PUFFS Q2HRS
     Route: 048
     Dates: start: 20240627
  81. ALBUTEROL [Concomitant]
     Active Substance: ALBUTEROL
     Indication: Dyspnoea
     Dosage: 1 DOSAGE FORM, AS REQUIRED
     Route: 048
  82. SENNOSIDES [Concomitant]
     Active Substance: SENNOSIDES
     Indication: Constipation
     Dosage: TAKE 1 TO 2 TABS DAILY IF NO BM FOR 2-3 DAY
     Route: 048
  83. SENNOSIDES [Concomitant]
     Active Substance: SENNOSIDES
     Indication: Constipation
     Dosage: 8.6 MILLIGRAM, AS REQUIRED
     Route: 048
  84. SIMETHICONE (DIMETHICONE) [Concomitant]
     Active Substance: DIMETHICONE
     Indication: Flatulence
     Dosage: 125 MG, AS NEEDED
     Route: 048
     Dates: start: 20240816
  85. TYLENOL [Concomitant]
     Active Substance: ACETAMINOPHEN
     Dosage: UNK, AS NEEDED
  86. VANCOMYCIN [Concomitant]
     Active Substance: VANCOMYCIN
     Indication: Clostridium difficile colitis
     Dosage: 125 MG, FOUR TIMES A DAY
     Route: 048
  87. VITAMIN C [Concomitant]
     Active Substance: ASCORBIC ACID
     Dosage: UNK, (DAILY MON,WED,FRI,SAT AT 13:00 HRS)
     Route: 048
  88. VITAMIN C [Concomitant]
     Active Substance: ASCORBIC ACID
     Dosage: 5000 MILLIGRAM
     Route: 048
  89. VITAMIN C [Concomitant]
     Active Substance: ASCORBIC ACID
     Dosage: 500 MILLIGRAM
     Route: 048
  90. CHOLECALCIFEROL [Concomitant]
     Active Substance: CHOLECALCIFEROL
     Dosage: 1000 UNIT - 1 TAB ORAL ONCE DAILY
     Route: 048
     Dates: start: 20240628
  91. ZINC OXIDE [Concomitant]
     Active Substance: ZINC OXIDE
     Indication: Skin disorder
     Dosage: EXTERNAL OINTMENT 15% APPLY TO GLUTEAL REGION TOPICALLY
     Route: 061
     Dates: start: 20240711
  92. ZINC OXIDE [Concomitant]
     Active Substance: ZINC OXIDE
     Indication: Skin disorder
     Dosage: 2 EVERY 1 DAYS
     Route: 061
  93. FELODIPINE [Concomitant]
     Active Substance: FELODIPINE
     Dosage: 2.5 MG
     Route: 048
     Dates: start: 20240628
  94. FAMOTIDINE [Concomitant]
     Active Substance: FAMOTIDINE
     Dosage: 20 MG, 2X/DAY
     Route: 048
  95. BUDESONIDE [Concomitant]
     Active Substance: BUDESONIDE
     Dosage: 9 MG, 1X/DAY
  96. VENTOLIN [Concomitant]
     Active Substance: ALBUTEROL SULFATE
     Dosage: IF COMPLAINS OF SHORTNESS OF BREATH EVERY SHIFT
     Dates: start: 20250205
  97. CETYLPYRIDINIUM CHLORIDE [Concomitant]
     Active Substance: CETYLPYRIDINIUM CHLORIDE
     Dosage: 2 SPRAYS, EVERY 4 HOURS AS NEEDED
     Route: 048
     Dates: start: 20250721

REACTIONS (19)
  - Condition aggravated [Not Recovered/Not Resolved]
  - Delirium [Not Recovered/Not Resolved]
  - Colorectal cancer [Unknown]
  - Rectal cancer [Not Recovered/Not Resolved]
  - Abdominal distension [Not Recovered/Not Resolved]
  - Contusion [Not Recovered/Not Resolved]
  - Flatulence [Not Recovered/Not Resolved]
  - Dyspnoea [Not Recovered/Not Resolved]
  - Agitation [Not Recovered/Not Resolved]
  - Pruritus [Not Recovered/Not Resolved]
  - Erythema [Not Recovered/Not Resolved]
  - Rash [Not Recovered/Not Resolved]
  - Pain in extremity [Not Recovered/Not Resolved]
  - Intentional product use issue [Not Recovered/Not Resolved]
  - Off label use [Not Recovered/Not Resolved]
  - Eczema eyelids [Unknown]
  - Decubitus ulcer [Unknown]
  - Overdose [Unknown]
  - Underdose [Unknown]

NARRATIVE: CASE EVENT DATE: 20240101
